FAERS Safety Report 8278356-1 (Version None)
Quarter: 2012Q2

REPORT INFORMATION
  Report Type: 
  Country: None (occurrence: None)
  Receive Date: 20120412
  Receipt Date: 20111118
  Transmission Date: 20120825
  Serious: No
  Sender: FDA-Public Use
  Company Number: US-ASTRAZENECA-2011SE51815

PATIENT
  Age: 64 Year
  Sex: Female

DRUGS (4)
  1. PRILOSEC [Suspect]
     Route: 048
  2. PREVACID [Suspect]
     Route: 065
  3. NEXIUM [Suspect]
     Route: 048
  4. PRILOSEC [Concomitant]

REACTIONS (7)
  - ABDOMINAL PAIN [None]
  - DRUG INEFFECTIVE [None]
  - RETCHING [None]
  - GASTROOESOPHAGEAL REFLUX DISEASE [None]
  - BARRETT'S OESOPHAGUS [None]
  - DRUG DOSE OMISSION [None]
  - HERNIA [None]
